FAERS Safety Report 12662882 (Version 1)
Quarter: 2016Q3

REPORT INFORMATION
  Report Type: Spontaneous
  Country: US (occurrence: None)
  Receive Date: 20160817
  Receipt Date: 20160817
  Transmission Date: 20161109
  Serious: No
  Sender: FDA-Public Use
  Company Number: None

PATIENT
  Age: 73 Year
  Sex: Male
  Weight: 92.53 kg

DRUGS (8)
  1. TIKOSYN - DOFETILIDE (GENERIC) MAYNE PHARMACEUTICAL [Suspect]
     Active Substance: DOFETILIDE
     Indication: ATRIAL FIBRILLATION
     Dosage: 250 MCG CAP 1 PILL 7 AM 7PM TWICE DAILY MOUTH
     Route: 048
     Dates: start: 20160708, end: 20160802
  2. ATORVASTATIN [Concomitant]
     Active Substance: ATORVASTATIN
  3. CARVEDILOL. [Concomitant]
     Active Substance: CARVEDILOL
  4. CARTIA XT [Concomitant]
     Active Substance: DILTIAZEM HYDROCHLORIDE
  5. TYLENOL [Concomitant]
     Active Substance: ACETAMINOPHEN
  6. ELIQUIS [Concomitant]
     Active Substance: APIXABAN
  7. ALLEGRA [Concomitant]
     Active Substance: FEXOFENADINE HYDROCHLORIDE
  8. LISINOPRIL. [Concomitant]
     Active Substance: LISINOPRIL

REACTIONS (10)
  - Abdominal discomfort [None]
  - Dyspnoea [None]
  - Memory impairment [None]
  - Headache [None]
  - Decreased appetite [None]
  - Gastric disorder [None]
  - Diarrhoea [None]
  - Hyperhidrosis [None]
  - Vomiting [None]
  - Fatigue [None]

NARRATIVE: CASE EVENT DATE: 20160714
